FAERS Safety Report 18220403 (Version 1)
Quarter: 2020Q3

REPORT INFORMATION
  Report Type: Spontaneous
  Country: FR (occurrence: FR)
  Receive Date: 20200902
  Receipt Date: 20200902
  Transmission Date: 20201103
  Serious: Yes (Death, Other)
  Sender: FDA-Public Use
  Company Number: FR-AUROBINDO-AUR-APL-2020-045738

PATIENT
  Age: 4 Year
  Sex: Female

DRUGS (3)
  1. HYDROXYUREA. [Suspect]
     Active Substance: HYDROXYUREA
     Indication: CHRONIC MYELOID LEUKAEMIA
     Dosage: UNK
     Route: 065
  2. IMATINIB. [Suspect]
     Active Substance: IMATINIB MESYLATE
     Dosage: 600 MILLIGRAM, ONCE A DAY (300?600 MG, QD)
     Route: 065
  3. IMATINIB. [Suspect]
     Active Substance: IMATINIB MESYLATE
     Indication: CHRONIC MYELOID LEUKAEMIA
     Dosage: UNK (1ST LINE THERAPY)
     Route: 065

REACTIONS (4)
  - Chronic myeloid leukaemia [Fatal]
  - Opportunistic infection [Unknown]
  - Blast crisis in myelogenous leukaemia [Unknown]
  - Malignant neoplasm progression [Fatal]
